FAERS Safety Report 18490960 (Version 1)
Quarter: 2020Q4

REPORT INFORMATION
  Report Type: Spontaneous
  Country: IN (occurrence: IN)
  Receive Date: 20201111
  Receipt Date: 20201111
  Transmission Date: 20210114
  Serious: Yes (Other)
  Sender: FDA-Public Use
  Company Number: IN-MYLANLABS-2020M1094258

PATIENT
  Age: 40 Year
  Sex: Male

DRUGS (2)
  1. FLUOROURACIL. [Suspect]
     Active Substance: FLUOROURACIL
     Indication: GASTROINTESTINAL ADENOCARCINOMA
     Dosage: 3 CYCLES OF PALLIATIVE...
     Route: 065
  2. CISPLATIN. [Suspect]
     Active Substance: CISPLATIN
     Indication: GASTROINTESTINAL ADENOCARCINOMA
     Dosage: 3 CYCLES OF PALLIATIVE.......
     Route: 065

REACTIONS (1)
  - Neuropathy peripheral [Recovering/Resolving]
